FAERS Safety Report 21191478 (Version 1)
Quarter: 2022Q3

REPORT INFORMATION
  Report Type: Spontaneous
  Country: US (occurrence: US)
  Receive Date: 20220809
  Receipt Date: 20220809
  Transmission Date: 20221027
  Serious: No
  Sender: FDA-Public Use
  Company Number: US-JOURNEY MEDICAL CORPORATION-2022JNY00631

PATIENT
  Age: 31 Year
  Sex: Female
  Weight: 81.633 kg

DRUGS (8)
  1. QBREXZA [Suspect]
     Active Substance: GLYCOPYRRONIUM TOSYLATE
     Indication: Hyperhidrosis
     Dosage: 1 WET CLOTH, 1X/DAY APPLIED AS ONE SWIPE ON EACH ARMPIT FIRST THING IN THE MORNING
     Route: 061
     Dates: start: 20220325
  2. QBREXZA [Suspect]
     Active Substance: GLYCOPYRRONIUM TOSYLATE
     Dosage: 1 WET CLOTH, 1X/DAY APPLIED AS ONE SWIPE ON EACH ARMPIT FIRST THING IN THE MORNING
     Route: 061
     Dates: end: 20220411
  3. GABAPENTIN [Suspect]
     Active Substance: GABAPENTIN
     Indication: Pain
     Dosage: 100 MG, 1X/DAY
     Dates: start: 202202, end: 2022
  4. GABAPENTIN [Suspect]
     Active Substance: GABAPENTIN
     Dosage: 100 MG, EVERY 48 HOURS (ALTERNATE WITH TIZANIDINE)
     Dates: start: 2022
  5. TIZANIDINE [Suspect]
     Active Substance: TIZANIDINE
     Indication: Pain
     Dosage: 4 MG, 1X/DAY AT NIGHT
     Dates: end: 2022
  6. TIZANIDINE [Suspect]
     Active Substance: TIZANIDINE
     Dosage: 4 MG, EVERY 48 HOURS AT NIGHT (ALTERNATING WITH GABAPENTIN)
     Dates: start: 2022
  7. CYMBALTA [Concomitant]
     Active Substance: DULOXETINE HYDROCHLORIDE
     Dosage: 40 MG, 1X/DAY IN THE MORNING
  8. BENTYL [Concomitant]
     Active Substance: DICYCLOMINE HYDROCHLORIDE
     Dosage: UNK, AS NEEDED

REACTIONS (6)
  - Dysuria [Recovering/Resolving]
  - Expired product administered [Recovered/Resolved]
  - Dry mouth [Recovered/Resolved]
  - Dry eye [Recovering/Resolving]
  - Vision blurred [Recovering/Resolving]
  - Mydriasis [Recovering/Resolving]

NARRATIVE: CASE EVENT DATE: 20220329
